FAERS Safety Report 22218395 (Version 1)
Quarter: 2023Q2

REPORT INFORMATION
  Report Type: Spontaneous
  Country: CN (occurrence: CN)
  Receive Date: 20230417
  Receipt Date: 20230417
  Transmission Date: 20230722
  Serious: Yes (Hospitalization, Other)
  Sender: FDA-Public Use
  Company Number: CN-009507513-2304CHN005148

PATIENT
  Age: 80 Year
  Sex: Male

DRUGS (3)
  1. EMEND [Suspect]
     Active Substance: APREPITANT
     Indication: Gastric cancer
     Dosage: 80 MILLIGRAM, QD
     Route: 048
     Dates: start: 20230328, end: 20230328
  2. JAMP PANTOPRAZOLE SODIUM [Concomitant]
  3. DEXAMETHASONE SODIUM PHOSPHATE [Concomitant]
     Active Substance: DEXAMETHASONE SODIUM PHOSPHATE

REACTIONS (5)
  - Malignant neoplasm progression [Unknown]
  - Constipation [Recovering/Resolving]
  - Product use in unapproved indication [Unknown]
  - Incorrect dose administered [Unknown]
  - Product prescribing issue [Unknown]

NARRATIVE: CASE EVENT DATE: 20230101
